FAERS Safety Report 13345935 (Version 1)
Quarter: 2017Q1

REPORT INFORMATION
  Report Type: Spontaneous
  Country: US (occurrence: US)
  Receive Date: 20170317
  Receipt Date: 20170317
  Transmission Date: 20170428
  Serious: No
  Sender: FDA-Public Use
  Company Number: None

PATIENT
  Age: 60 Year
  Sex: Male
  Weight: 80.74 kg

DRUGS (6)
  1. VITAMINS [Concomitant]
     Active Substance: VITAMINS
  2. BIMATOPROST. [Suspect]
     Active Substance: BIMATOPROST
     Indication: GLAUCOMA
     Route: 047
     Dates: start: 201701, end: 20170222
  3. TIMOLOL. [Concomitant]
     Active Substance: TIMOLOL
  4. EYE DROPS [Concomitant]
  5. OCUVITE [Concomitant]
     Active Substance: VITAMINS
  6. ACETAMINOPHEN. [Concomitant]
     Active Substance: ACETAMINOPHEN

REACTIONS (4)
  - Eye irritation [None]
  - Foreign body in eye [None]
  - Eye pain [None]
  - Product dropper issue [None]

NARRATIVE: CASE EVENT DATE: 20170222
